FAERS Safety Report 9500544 (Version 3)
Quarter: 2013Q4

REPORT INFORMATION
  Report Type: Spontaneous
  Country: CZ (occurrence: CZ)
  Receive Date: 20130905
  Receipt Date: 20131025
  Transmission Date: 20140711
  Serious: Yes (Other)
  Sender: FDA-Public Use
  Company Number: CZ-BAYER-2013-106874

PATIENT
  Age: 34 Year
  Sex: Female

DRUGS (3)
  1. MIRENA [Suspect]
     Indication: CONTRACEPTION
     Dosage: 20 MCG/24HR, CONT
     Route: 015
     Dates: start: 20130304, end: 20130802
  2. ZINNAT [Concomitant]
     Dosage: 500 MG, UNK
     Route: 048
  3. SODIUM BORATE [Concomitant]
     Route: 067

REACTIONS (5)
  - Dysmenorrhoea [Recovered/Resolved]
  - Cystitis [None]
  - Dyspepsia [Recovered/Resolved]
  - Pelvic pain [Recovered/Resolved]
  - Vaginal infection [Recovered/Resolved]
